FAERS Safety Report 6998828-7 (Version None)
Quarter: 2010Q3

REPORT INFORMATION
  Report Type: 
  Country: None (occurrence: None)
  Receive Date: 20100920
  Receipt Date: 20070906
  Transmission Date: 20110219
  Serious: Yes (Other)
  Sender: FDA-Public Use
  Company Number: US-ASTRAZENECA-2006UW12134

PATIENT
  Age: 16579 Day
  Sex: Female
  Weight: 80.7 kg

DRUGS (13)
  1. SEROQUEL [Suspect]
     Indication: BIPOLAR DISORDER
     Route: 048
     Dates: start: 20050331
  2. SEROQUEL [Suspect]
     Indication: SCHIZOPHRENIA
     Route: 048
     Dates: start: 20050331
  3. SEROQUEL [Suspect]
     Route: 048
     Dates: start: 20050101, end: 20060301
  4. SEROQUEL [Suspect]
     Route: 048
     Dates: start: 20050101, end: 20060301
  5. GLUCOPHAGE [Concomitant]
     Dosage: 500 MG DISPENSED
     Dates: start: 20011030
  6. LISINOPRIL [Concomitant]
     Dosage: 100 MG DISPENSED
     Dates: start: 20050331
  7. NEXIUM [Concomitant]
     Dosage: 40 MG DISPENSED
     Dates: start: 20011030
  8. AMARYL [Concomitant]
     Dates: start: 20011030
  9. SINGULAIR [Concomitant]
     Dosage: 10 MG DISPENSED
     Dates: start: 20011030
  10. PAROXETINE HCL [Concomitant]
     Dosage: 30 MG - 40 MG
     Dates: start: 20050409
  11. DITROPAN [Concomitant]
     Dosage: 10 MG DISPENSED
     Dates: start: 20011030
  12. HYDROCODONE BITARTRATE AND ACETAMINOPHEN [Concomitant]
     Dosage: 7.5/650 MG DISPENSED
     Dates: start: 20050331
  13. LITHIUM CARBONATE [Concomitant]
     Dosage: 450 MG DISPENSED
     Dates: start: 20050110

REACTIONS (3)
  - DIABETES MELLITUS [None]
  - DIABETES MELLITUS INADEQUATE CONTROL [None]
  - DIABETIC KETOACIDOSIS [None]
